FAERS Safety Report 6617960-0 (Version None)
Quarter: 2010Q1

REPORT INFORMATION
  Report Type: 
  Country: None (occurrence: None)
  Receive Date: 20100308
  Receipt Date: 20100301
  Transmission Date: 20100710
  Serious: Yes (Hospitalization, Other)
  Sender: FDA-Public Use
  Company Number: PHHY2010AR11388

PATIENT
  Sex: Female

DRUGS (3)
  1. EXELON [Suspect]
     Indication: DEMENTIA ALZHEIMER'S TYPE
     Dosage: 4.6 MG, QD, 1 PATCH DAILY 5 CM2
     Route: 062
     Dates: end: 20100223
  2. SEROQUEL [Suspect]
  3. DIAZEPAM [Concomitant]
     Indication: MUSCLE CONTRACTURE

REACTIONS (10)
  - CONFUSIONAL STATE [None]
  - DECREASED APPETITE [None]
  - DIZZINESS [None]
  - FATIGUE [None]
  - GASTRIC ULCER [None]
  - HALLUCINATION [None]
  - HEADACHE [None]
  - MEMORY IMPAIRMENT [None]
  - SYNCOPE [None]
  - WEIGHT DECREASED [None]
